FAERS Safety Report 4401885-5 (Version None)
Quarter: 2004Q3

REPORT INFORMATION
  Report Type: 
  Country: None (occurrence: None)
  Receive Date: 20040719
  Receipt Date: 20040719
  Transmission Date: 20050211
  Serious: Yes (Other)
  Sender: FDA-Public Use
  Company Number: None

PATIENT

DRUGS (2)
  1. DEBROX [Suspect]
     Dosage: SOLUTION DROPS
  2. DOMEBORO [Suspect]
     Dosage: SOLUTION DROPS

REACTIONS (1)
  - MEDICATION ERROR [None]
